FAERS Safety Report 15947193 (Version 1)
Quarter: 2019Q1

REPORT INFORMATION
  Report Type: Spontaneous
  Country: US (occurrence: US)
  Receive Date: 20190211
  Receipt Date: 20190211
  Transmission Date: 20190417
  Serious: No
  Sender: FDA-Public Use
  Company Number: US-PFIZER INC-2019053843

PATIENT
  Sex: Female
  Weight: 88.45 kg

DRUGS (3)
  1. LYRICA [Suspect]
     Active Substance: PREGABALIN
     Dosage: 300 MG, 2X/DAY [TWO 150 MG CAPSULES]
  2. LYRICA [Suspect]
     Active Substance: PREGABALIN
     Indication: NEUROPATHY PERIPHERAL
     Dosage: 150 MG, 2X/DAY
     Dates: start: 20180515
  3. LYRICA [Suspect]
     Active Substance: PREGABALIN
     Dosage: 450 MG, DAILY

REACTIONS (1)
  - Drug effect incomplete [Unknown]
